FAERS Safety Report 7146622-9 (Version None)
Quarter: 2010Q4

REPORT INFORMATION
  Report Type: 
  Country: None (occurrence: None)
  Receive Date: 20101208
  Receipt Date: 20101123
  Transmission Date: 20110411
  Serious: Yes (Other)
  Sender: FDA-Public Use
  Company Number: FR-AMGEN-FRASP2010007054

PATIENT

DRUGS (2)
  1. ENBREL [Suspect]
     Indication: RHEUMATOID ARTHRITIS
     Dosage: 50 MG, 2X/WEEK
     Dates: start: 20070101, end: 20101011
  2. ENBREL [Suspect]
     Dosage: UNK
     Dates: start: 20101101

REACTIONS (5)
  - NASOPHARYNGITIS [None]
  - ORAL HERPES [None]
  - OROPHARYNGEAL PAIN [None]
  - RHINORRHOEA [None]
  - WEIGHT INCREASED [None]
